FAERS Safety Report 21698494 (Version 1)
Quarter: 2022Q4

REPORT INFORMATION
  Report Type: Spontaneous
  Country: None (occurrence: PT)
  Receive Date: 20221208
  Receipt Date: 20221208
  Transmission Date: 20230112
  Serious: Yes (Hospitalization, Other)
  Sender: FDA-Public Use
  Company Number: PT-Therakind Limited-2135668

PATIENT
  Age: 85 Year
  Sex: Female

DRUGS (2)
  1. METHOTREXATE [Suspect]
     Active Substance: METHOTREXATE
  2. PREDNISOLONE [Suspect]
     Active Substance: PREDNISOLONE

REACTIONS (5)
  - Pancytopenia [Recovered/Resolved]
  - Febrile neutropenia [Unknown]
  - Stomatitis [Recovering/Resolving]
  - Vitamin B12 deficiency [Unknown]
  - Folate deficiency [Unknown]
